FAERS Safety Report 8367360-0 (Version None)
Quarter: 2012Q2

REPORT INFORMATION
  Report Type: 
  Country: None (occurrence: None)
  Receive Date: 20120517
  Receipt Date: 20120507
  Transmission Date: 20120825
  Serious: Yes (Hospitalization, Other)
  Sender: FDA-Public Use
  Company Number: JP-CELGENEUS-087-50794-12051701

PATIENT
  Sex: Male
  Weight: 68 kg

DRUGS (22)
  1. VIDAZA [Suspect]
     Dosage: 75 MILLIGRAM/SQ. METER
     Route: 058
     Dates: start: 20110905, end: 20110909
  2. MASHININGAN [Concomitant]
     Route: 065
     Dates: start: 20110811
  3. LASIX [Concomitant]
     Route: 065
     Dates: start: 20111012, end: 20111108
  4. DORIPENEM MONOHYDRATE [Concomitant]
     Route: 065
     Dates: start: 20111124, end: 20111202
  5. VIDAZA [Suspect]
     Dosage: 75 MILLIGRAM/SQ. METER
     Route: 058
     Dates: start: 20110804, end: 20110810
  6. ASPIRIN [Concomitant]
     Route: 065
  7. UNASYN [Concomitant]
     Route: 065
     Dates: start: 20111122, end: 20111202
  8. VIDAZA [Suspect]
     Dosage: 75 MILLIGRAM/SQ. METER
     Route: 058
     Dates: start: 20111003, end: 20111007
  9. VIDAZA [Suspect]
     Dosage: 75 MILLIGRAM/SQ. METER
     Route: 058
     Dates: start: 20111205, end: 20111211
  10. METFORMIN HCL [Concomitant]
     Route: 065
     Dates: start: 20110811
  11. DORIPENEM MONOHYDRATE [Concomitant]
     Route: 065
     Dates: start: 20111215, end: 20111219
  12. MAGMITT [Concomitant]
     Route: 065
  13. EXJADE [Concomitant]
     Route: 065
     Dates: start: 20111109
  14. FAMOTIDINE [Concomitant]
     Route: 065
     Dates: start: 20110816
  15. AMARYL [Concomitant]
     Route: 065
     Dates: start: 20111007
  16. PRAVASTATIN SODIUM [Concomitant]
     Route: 065
  17. MUCOSTA [Concomitant]
     Route: 065
     Dates: start: 20110816
  18. VIDAZA [Suspect]
     Dosage: 75 MILLIGRAM/SQ. METER
     Route: 058
     Dates: start: 20111031, end: 20111104
  19. VIDAZA [Suspect]
     Dosage: 75 MILLIGRAM/SQ. METER
     Route: 058
     Dates: start: 20120106, end: 20120112
  20. ALOXI [Concomitant]
     Route: 065
     Dates: start: 20110804, end: 20110804
  21. DILTIAZEM HCL [Concomitant]
     Route: 065
  22. FIRSTCIN [Concomitant]
     Route: 065
     Dates: start: 20111213, end: 20111215

REACTIONS (11)
  - PLATELET COUNT INCREASED [None]
  - WHITE BLOOD CELL COUNT DECREASED [None]
  - SERUM FERRITIN INCREASED [None]
  - HYPONATRAEMIA [None]
  - BLOOD LACTATE DEHYDROGENASE INCREASED [None]
  - COLITIS ISCHAEMIC [None]
  - WEIGHT INCREASED [None]
  - HYPERKALAEMIA [None]
  - WHITE BLOOD CELL COUNT INCREASED [None]
  - PNEUMONIA [None]
  - BLAST CELL COUNT INCREASED [None]
